FAERS Safety Report 6788087-2 (Version None)
Quarter: 2010Q2

REPORT INFORMATION
  Report Type: 
  Country: None (occurrence: None)
  Receive Date: 20100623
  Receipt Date: 20080708
  Transmission Date: 20101027
  Serious: No
  Sender: FDA-Public Use
  Company Number: US-PFIZER INC-2007105694

PATIENT
  Sex: Male
  Weight: 68.04 kg

DRUGS (3)
  1. XALATAN [Suspect]
     Indication: INTRAOCULAR PRESSURE TEST ABNORMAL
     Dates: start: 20071101
  2. XAL-EASE [Suspect]
     Dates: start: 20070101
  3. NO PRODUCT FOUND [Suspect]

REACTIONS (3)
  - DRUG ADMINISTRATION ERROR [None]
  - MEDICAL DEVICE COMPLICATION [None]
  - NO ADVERSE EVENT [None]
